FAERS Safety Report 12994093 (Version 1)
Quarter: 2016Q4

REPORT INFORMATION
  Report Type: Spontaneous
  Country: US (occurrence: US)
  Receive Date: 20161201
  Receipt Date: 20161201
  Transmission Date: 20170207
  Serious: Yes (Other)
  Sender: FDA-Public Use
  Company Number: None

PATIENT
  Age: 52 Year
  Sex: Female
  Weight: 46.35 kg

DRUGS (3)
  1. MIRALAX [Suspect]
     Active Substance: POLYETHYLENE GLYCOL 3350
     Indication: COLONOSCOPY
     Dosage: ?          QUANTITY:238 MG;OTHER FREQUENCY:GRADUALLY AS PREP;?
     Route: 048
     Dates: start: 20161130, end: 20161130
  2. POTASSIUM [Concomitant]
     Active Substance: POTASSIUM
  3. AMLODIPINE [Concomitant]
     Active Substance: AMLODIPINE BESYLATE

REACTIONS (12)
  - Abdominal distension [None]
  - Peripheral swelling [None]
  - Haematochezia [None]
  - Product formulation issue [None]
  - Rash [None]
  - Swelling face [None]
  - Tremor [None]
  - Dizziness [None]
  - Hypertension [None]
  - Pruritus [None]
  - Joint swelling [None]
  - Abdominal pain [None]

NARRATIVE: CASE EVENT DATE: 20161130
